FAERS Safety Report 23363975 (Version 1)
Quarter: 2024Q1

REPORT INFORMATION
  Report Type: Spontaneous
  Country: US (occurrence: US)
  Receive Date: 20240104
  Receipt Date: 20240104
  Transmission Date: 20240410
  Serious: Yes (Hospitalization, Other)
  Sender: FDA-Public Use
  Company Number: US-MLMSERVICE-20231215-4728738-1

PATIENT

DRUGS (3)
  1. ESTRADIOL [Suspect]
     Active Substance: ESTRADIOL
     Indication: In vitro fertilisation
     Dosage: UNK UNK, OD
     Route: 065
  2. PROGESTERONE [Suspect]
     Active Substance: PROGESTERONE
     Indication: In vitro fertilisation
     Dosage: UNK, OD
     Route: 065
  3. LEUPROLIDE ACETATE [Concomitant]
     Active Substance: LEUPROLIDE ACETATE
     Indication: In vitro fertilisation
     Dosage: UNK
     Route: 065

REACTIONS (2)
  - Optic neuropathy [Not Recovered/Not Resolved]
  - Optic nerve sheath meningioma [Not Recovered/Not Resolved]
